FAERS Safety Report 6083986-1 (Version None)
Quarter: 2009Q1

REPORT INFORMATION
  Report Type: 
  Country: None (occurrence: None)
  Receive Date: 20090219
  Receipt Date: 20090206
  Transmission Date: 20090719
  Serious: Yes (Hospitalization, Other)
  Sender: FDA-Public Use
  Company Number: FR-ELI_LILLY_AND_COMPANY-FR200902001637

PATIENT
  Sex: Female

DRUGS (7)
  1. ZYPREXA [Suspect]
     Dosage: 5 MG, 2/D
     Route: 048
  2. ZYPREXA [Suspect]
     Dosage: 5 MG, DAILY (1/D)
  3. NORSET [Concomitant]
     Dosage: 15 MG, 2/D
     Route: 048
  4. THERALENE [Concomitant]
     Dosage: 10 GTT, DAILY (1/D)
     Route: 048
     Dates: end: 20090102
  5. LEXOMIL [Concomitant]
     Dosage: 0.5 D/F, DAILY (1/D)
     Route: 048
  6. COVERSYL [Concomitant]
     Dosage: 2 MG, DAILY (1/D)
     Route: 048
  7. IMOVANE [Concomitant]
     Dosage: 1 D/F, DAILY (1/D)

REACTIONS (3)
  - ATRIOVENTRICULAR BLOCK [None]
  - EXTRAPYRAMIDAL DISORDER [None]
  - FALL [None]
